FAERS Safety Report 8780891 (Version 1)
Quarter: 2012Q4

REPORT INFORMATION
  Report Type: 
  Country: US (occurrence: US)
  Receive Date: 20120913
  Receipt Date: 20120913
  Transmission Date: 20130627
  Serious: Yes (Hospitalization)
  Sender: FDA-Public Use
  Company Number: US-PFIZER INC-2012049382

PATIENT
  Age: 86 Year
  Sex: Female

DRUGS (21)
  1. LYRICA [Suspect]
     Indication: FIBROMYALGIA
     Dosage: 125 mg, 2x/day
  2. ANTIVERT [Suspect]
  3. CALAN [Suspect]
  4. XANAX [Suspect]
  5. ZOLOFT [Suspect]
  6. VERAPAMIL [Concomitant]
     Dosage: 120 mg, 1x/day
  7. COUMADIN [Concomitant]
     Dosage: 2 mg, 1x/day
  8. AVAPRO [Concomitant]
     Dosage: 75 mg, 1x/day
  9. BYSTOLIC [Concomitant]
     Dosage: 2.5 mg, 1x/day
  10. ALLEGRA [Concomitant]
     Dosage: 60 mg, 2x/day
  11. ANUSOL [Concomitant]
     Dosage: UNK
  12. CALCIUM [Concomitant]
     Dosage: 1200 mg, 1x/day
  13. VITAMIN D3 [Concomitant]
     Dosage: 1000 IU, 1x/day
  14. VITAMIN C [Concomitant]
     Dosage: 500 mg, 1x/day
  15. SUPER VITAMIN B COMPLEX [Concomitant]
     Dosage: 1 UNK, 1x/day
  16. XANAX [Concomitant]
     Dosage: half of 25 mg at nite
  17. MAXZIDE [Concomitant]
     Dosage: 25 mg, 1x/day
  18. PLAQUENIL [Concomitant]
     Dosage: 200 mg, 2x/day
  19. ANTIVERT [Concomitant]
     Dosage: 25 mg, as needed
  20. SUMAL [Concomitant]
     Indication: MUSCLE SPASMS
     Dosage: 0.125 UNK, every 4 hrs,as needed
  21. MACROBID [Concomitant]
     Dosage: 100 mg, 1x/day

REACTIONS (2)
  - Haemorrhage [Unknown]
  - Malaise [Unknown]
